FAERS Safety Report 5636907-7 (Version None)
Quarter: 2008Q1

REPORT INFORMATION
  Report Type: 
  Country: None (occurrence: None)
  Receive Date: 20080225
  Receipt Date: 20080214
  Transmission Date: 20080703
  Serious: Yes (Other)
  Sender: FDA-Public Use
  Company Number: JP-ROCHE-546114

PATIENT
  Age: 5 Year
  Sex: Female
  Weight: 23 kg

DRUGS (7)
  1. TAMIFLU [Suspect]
     Dosage: DRUG REPORTED AS TAMIFLU DRY SYRUP 3%
     Route: 048
     Dates: start: 20080128, end: 20080128
  2. TAMIFLU [Suspect]
     Route: 048
     Dates: start: 20080129, end: 20080201
  3. TAMIFLU [Suspect]
     Route: 048
     Dates: start: 20080202, end: 20080202
  4. ASVERIN [Concomitant]
     Route: 048
     Dates: start: 20080128, end: 20080202
  5. MUCODYNE [Concomitant]
     Dosage: FORM: FINE GRANULE
     Route: 048
     Dates: start: 20080128, end: 20080202
  6. MUCOSAL [Concomitant]
     Route: 048
     Dates: start: 20080128, end: 20080202
  7. TRANSAMIN [Concomitant]
     Route: 048
     Dates: start: 20080128, end: 20080202

REACTIONS (1)
  - DELIRIUM FEBRILE [None]
